FAERS Safety Report 8506117-4 (Version None)
Quarter: 2012Q3

REPORT INFORMATION
  Report Type: 
  Country: None (occurrence: None)
  Receive Date: 20120712
  Receipt Date: 20120703
  Transmission Date: 20120928
  Serious: Yes (Death, Other)
  Sender: FDA-Public Use
  Company Number: NZ-ROCHE-1081602

PATIENT
  Sex: Female

DRUGS (30)
  1. ASPIRIN [Concomitant]
  2. FUROSEMIDE [Concomitant]
  3. PANTOPRAZOLE SODIUM [Concomitant]
  4. FRUSEMIDE [Concomitant]
  5. MORPHINE [Concomitant]
  6. PREDNISONE [Concomitant]
  7. ACETAMINOPHEN [Concomitant]
  8. CODEINE SULFATE [Concomitant]
  9. ACYCLOVIR [Concomitant]
  10. METHOTREXATE [Concomitant]
  11. LOSARTAN POTASSIUM [Concomitant]
  12. PLAQUENIL [Concomitant]
  13. FORTISIP [Concomitant]
     Dosage: ONE SUPPLIMENT
  14. CLOTRIMAZOL [Concomitant]
     Route: 061
  15. ZOPICLONE [Concomitant]
  16. FLECAINIDE ACETATE [Concomitant]
  17. MAXIDEX [Concomitant]
  18. FLUTICASONE PROPIONATE/SALMETEROL [Concomitant]
     Dosage: 125/25 TWO PUFFS TWICE DAILY
  19. ALBUTEROL SULATE [Concomitant]
     Dosage: 100 MCG/PUFF, 2 PUFFS VIA SPACER
  20. LAXSOL [Concomitant]
     Dosage: 1-2 TALETS TWICE DAILY
  21. FRUSEMIDE [Concomitant]
     Indication: OEDEMA PERIPHERAL
  22. NAPROXEN [Concomitant]
  23. KLIOVANCE [Concomitant]
  24. FLUCLOXACILLIN [Concomitant]
  25. MABTHERA [Suspect]
     Indication: RHEUMATOID ARTHRITIS
     Route: 042
     Dates: start: 20120510, end: 20120524
  26. CLOPIDOGREL [Concomitant]
  27. METOPROLOL SUCCINATE [Concomitant]
  28. FOLIC ACID [Concomitant]
  29. LORATADINE [Concomitant]
  30. VALACICLOVIR [Concomitant]

REACTIONS (2)
  - NEUTROPENIA [None]
  - DEATH [None]
